FAERS Safety Report 19078448 (Version 1)
Quarter: 2021Q1

REPORT INFORMATION
  Report Type: Report from Study
  Country: BR (occurrence: BR)
  Receive Date: 20210331
  Receipt Date: 20210331
  Transmission Date: 20210420
  Serious: Yes (Life-Threatening, Hospitalization, Disabling, Other)
  Sender: FDA-Public Use
  Company Number: BR-TAKEDA-BR202004602

PATIENT
  Age: 31 Year
  Sex: Male
  Weight: 101 kg

DRUGS (3)
  1. HEMO?8R [Suspect]
     Active Substance: ANTIHEMOPHILIC FACTOR, HUMAN RECOMBINANT
     Indication: FACTOR VIII DEFICIENCY
     Dosage: 2500 INTERNATIONAL UNIT, 3/WEEK
     Route: 042
     Dates: start: 19900306
  2. FERROUS SULFATE. [Concomitant]
     Active Substance: FERROUS SULFATE
     Indication: PRODUCT USED FOR UNKNOWN INDICATION
  3. VITAMIN C ACID [Concomitant]
     Active Substance: ASCORBIC ACID
     Indication: PRODUCT USED FOR UNKNOWN INDICATION

REACTIONS (11)
  - Hepatitis C [Recovering/Resolving]
  - Coma [Recovered/Resolved]
  - Abdominal distension [Recovering/Resolving]
  - Limb injury [Recovering/Resolving]
  - Muscle atrophy [Unknown]
  - Abdominal pain upper [Recovering/Resolving]
  - Hepatic cirrhosis [Recovering/Resolving]
  - Hepatic pain [Unknown]
  - COVID-19 [Recovered/Resolved]
  - Joint swelling [Unknown]
  - Disability [Unknown]

NARRATIVE: CASE EVENT DATE: 2001
